FAERS Safety Report 8925336 (Version 1)
Quarter: 2012Q4

REPORT INFORMATION
  Report Type: Report from Study
  Country: US (occurrence: US)
  Receive Date: 20121126
  Receipt Date: 20121126
  Transmission Date: 20130627
  Serious: Yes (Hospitalization, Other)
  Sender: FDA-Public Use
  Company Number: US-PFIZER INC-2010156969

PATIENT
  Age: 73 Year
  Sex: Male
  Weight: 80.73 kg

DRUGS (2)
  1. SUTENT [Suspect]
     Indication: METASTATIC RENAL CELL CARCINOMA
     Dosage: 50 mg, cyclic
     Dates: start: 2009, end: 2010
  2. HYDROCHLOROTHIAZIDE WITH TRIAMTERENE [Concomitant]
     Indication: BLOOD PRESSURE HIGH
     Dosage: 75/50 mg, daily

REACTIONS (3)
  - Osteoarthritis [Unknown]
  - Thyroid disorder [Unknown]
  - Pain in extremity [Recovered/Resolved]
